FAERS Safety Report 5049111-0 (Version None)
Quarter: 2006Q3

REPORT INFORMATION
  Report Type: 
  Country: None (occurrence: None)
  Receive Date: 20060706
  Receipt Date: 20060623
  Transmission Date: 20061208
  Serious: Yes (Death, Other)
  Sender: FDA-Public Use
  Company Number: 2006080608

PATIENT
  Age: 69 Year
  Sex: Female

DRUGS (5)
  1. GABAPENTIN [Suspect]
     Dosage: 900 MG (1 D), ORAL
     Route: 048
     Dates: start: 20060619
  2. AMITRIPTYLINE (AMITRIPTYLINE) [Concomitant]
  3. CANDESARTAN CILEXETIL (CANDESARTAN CILEXETIL) [Concomitant]
  4. DEXAMETHASONE [Concomitant]
  5. TRAMADOL HCL [Concomitant]

REACTIONS (5)
  - COORDINATION ABNORMAL [None]
  - GASTROENTERITIS [None]
  - LOSS OF CONSCIOUSNESS [None]
  - MYOCLONUS [None]
  - PARAESTHESIA [None]
